FAERS Safety Report 20617023 (Version 1)
Quarter: 2022Q1

REPORT INFORMATION
  Report Type: Spontaneous
  Country: US (occurrence: None)
  Receive Date: 20220318
  Receipt Date: 20220318
  Transmission Date: 20220423
  Serious: Yes (Disabling)
  Sender: FDA-Public Use
  Company Number: None

PATIENT
  Age: 30 Year
  Sex: Female
  Weight: 56.25 kg

DRUGS (6)
  1. SUNOSI [Suspect]
     Active Substance: SOLRIAMFETOL
     Indication: Narcolepsy
     Route: 048
     Dates: start: 20220307, end: 20220315
  2. Ritalin 54mg [Concomitant]
  3. SINGULAIR [Concomitant]
     Active Substance: MONTELUKAST SODIUM
  4. Apri oral contraceptive [Concomitant]
  5. ALLEGRA-D [Concomitant]
     Active Substance: FEXOFENADINE HYDROCHLORIDE\PSEUDOEPHEDRINE HYDROCHLORIDE
  6. VITAMINS [Concomitant]
     Active Substance: VITAMINS

REACTIONS (5)
  - Narcolepsy [None]
  - Dizziness [None]
  - Dizziness [None]
  - Disturbance in attention [None]
  - Drug ineffective [None]

NARRATIVE: CASE EVENT DATE: 20220314
